FAERS Safety Report 18519889 (Version 2)
Quarter: 2020Q4

REPORT INFORMATION
  Report Type: Spontaneous
  Country: US (occurrence: US)
  Receive Date: 20201118
  Receipt Date: 20201119
  Transmission Date: 20210114
  Serious: Yes (Death, Hospitalization, Other)
  Sender: FDA-Public Use
  Company Number: US-CELGENEUS-USA-20201104142

PATIENT
  Age: 62 Year
  Sex: Female

DRUGS (1)
  1. POMALYST [Suspect]
     Active Substance: POMALIDOMIDE
     Indication: PLASMA CELL MYELOMA
     Dosage: 1 MILLIGRAM
     Route: 048
     Dates: start: 20190715, end: 20200920

REACTIONS (9)
  - Death [Fatal]
  - Pathological fracture [Unknown]
  - Spinal cord infection [Unknown]
  - Oxygen saturation decreased [Unknown]
  - Blood pressure immeasurable [Unknown]
  - White blood cell count increased [Unknown]
  - Muscular weakness [Unknown]
  - Acute myocardial infarction [Unknown]
  - Hypoaesthesia [Unknown]

NARRATIVE: CASE EVENT DATE: 2020
